FAERS Safety Report 14330189 (Version 2)
Quarter: 2018Q1

REPORT INFORMATION
  Report Type: Spontaneous
  Country: DE (occurrence: DE)
  Receive Date: 20171227
  Receipt Date: 20180116
  Transmission Date: 20180509
  Serious: Yes (Life-Threatening, Hospitalization)
  Sender: FDA-Public Use
  Company Number: DE-BRACCO DIAGNOSTICS, INC.-2017DE05916

PATIENT
  Age: 70 Year
  Sex: Male

DRUGS (1)
  1. SONOVUE [Suspect]
     Active Substance: SULFUR HEXAFLUORIDE
     Indication: DIAGNOSTIC PROCEDURE
     Dosage: UNK UNK, SINGLE (25 MG)
     Route: 042
     Dates: start: 20171129, end: 20171129

REACTIONS (10)
  - Dyspnoea [Unknown]
  - Procalcitonin increased [Unknown]
  - Anaphylactic shock [Unknown]
  - Cardiovascular disorder [Unknown]
  - Sepsis [Unknown]
  - C-reactive protein increased [Unknown]
  - Off label use [Unknown]
  - Somnolence [Unknown]
  - Tachycardia [Unknown]
  - White blood cell count decreased [Unknown]

NARRATIVE: CASE EVENT DATE: 20171129
